FAERS Safety Report 8158723-7 (Version None)
Quarter: 2012Q1

REPORT INFORMATION
  Report Type: 
  Country: None (occurrence: None)
  Receive Date: 20120223
  Receipt Date: 20120220
  Transmission Date: 20120608
  Serious: Yes (Hospitalization)
  Sender: FDA-Public Use
  Company Number: BE-AMGEN-BELSP2011061892

PATIENT
  Age: 73 Year
  Sex: Female
  Weight: 106 kg

DRUGS (16)
  1. VINCRISTINE [Suspect]
     Indication: DIFFUSE LARGE B-CELL LYMPHOMA
     Dosage: 2 MG, UNK
     Route: 042
     Dates: start: 20110204
  2. VINCRISTINE [Suspect]
     Dosage: UNK
     Route: 042
     Dates: start: 20110307
  3. PREDNISONE [Suspect]
     Dosage: 100 MG, UNK
     Route: 048
     Dates: start: 20110307
  4. ZANTAC [Concomitant]
     Indication: ABDOMINAL PAIN UPPER
     Dosage: 300 MG, UNK
     Route: 048
     Dates: start: 20110118
  5. NEUPOGEN [Suspect]
     Indication: DIFFUSE LARGE B-CELL LYMPHOMA
     Dosage: 6 MG, UNK
     Route: 058
     Dates: start: 20110205
  6. CIPROXINE                          /00697201/ [Concomitant]
     Indication: ANTIVIRAL PROPHYLAXIS
     Dosage: 1000 MG, UNK
     Route: 048
     Dates: start: 20110118
  7. DUOVENT [Concomitant]
     Indication: ASTHMA
     Dosage: UNK
     Dates: start: 20110202
  8. PREDNISONE [Suspect]
     Indication: DIFFUSE LARGE B-CELL LYMPHOMA
     Dosage: 100 MG, UNK
     Route: 048
     Dates: start: 20110204
  9. RITUXIMAB [Suspect]
     Indication: DIFFUSE LARGE B-CELL LYMPHOMA
     Dosage: 750 MG, UNK
     Route: 042
     Dates: start: 20110204
  10. RITUXIMAB [Suspect]
     Dosage: UNK
     Route: 042
     Dates: start: 20110307
  11. CYCLOPHOSPHAMIDE [Suspect]
     Indication: DIFFUSE LARGE B-CELL LYMPHOMA
     Dosage: 1500 MG, UNK
     Route: 042
     Dates: start: 20110204
  12. CYCLOPHOSPHAMIDE [Suspect]
     Dosage: UNK
     Route: 042
     Dates: start: 20110307
  13. DOXORUBICIN HCL [Suspect]
     Indication: DIFFUSE LARGE B-CELL LYMPHOMA
     Dosage: 100 MG, UNK
     Route: 042
     Dates: start: 20110204
  14. ACYCLOVIR [Concomitant]
     Indication: ANTIVIRAL PROPHYLAXIS
     Dosage: 600 MG, UNK
     Route: 048
     Dates: start: 20110118
  15. BUMETANIDE [Concomitant]
     Indication: FLUID RETENTION
     Dosage: 2.5 MG, UNK
     Route: 048
     Dates: start: 20110118
  16. SPIRIVA [Concomitant]
     Indication: ASTHMA
     Dosage: 18 MUG, UNK
     Route: 048
     Dates: start: 20110202

REACTIONS (1)
  - DIZZINESS POSTURAL [None]
